FAERS Safety Report 18542179 (Version 1)
Quarter: 2020Q4

REPORT INFORMATION
  Report Type: Spontaneous
  Country: US (occurrence: US)
  Receive Date: 20201124
  Receipt Date: 20201124
  Transmission Date: 20210114
  Serious: No
  Sender: FDA-Public Use
  Company Number: US-009507513-2011USA008980

PATIENT
  Age: 42 Year
  Sex: Male

DRUGS (4)
  1. AXITINIB [Suspect]
     Active Substance: AXITINIB
     Indication: METASTATIC RENAL CELL CARCINOMA
     Dosage: 5 MG ORALLY TWICE A DAY (SECOND LINE THERAPY)
     Route: 048
     Dates: start: 201905
  2. KEYTRUDA [Suspect]
     Active Substance: PEMBROLIZUMAB
     Indication: METASTATIC RENAL CELL CARCINOMA
     Dosage: 200 MG IV EVERY 4 WEEKS FOR 13 CYCLES (SECOND LINE THERAPY)
     Route: 042
     Dates: start: 201905
  3. KEYTRUDA [Suspect]
     Active Substance: PEMBROLIZUMAB
     Dosage: 200 MG IV EVERY 4 WEEKS FOR SECOND LINE THERAPY
     Route: 042
     Dates: start: 202002
  4. AXITINIB [Suspect]
     Active Substance: AXITINIB
     Dosage: 5 MG ORALLY TWICE A DAY (SECOND LINE THERAPY)
     Route: 048
     Dates: start: 202002

REACTIONS (2)
  - Inappropriate schedule of product administration [Unknown]
  - Product use in unapproved indication [Unknown]

NARRATIVE: CASE EVENT DATE: 201905
